FAERS Safety Report 17129609 (Version 1)
Quarter: 2019Q4

REPORT INFORMATION
  Report Type: Spontaneous
  Country: US (occurrence: US)
  Receive Date: 20191115
  Receipt Date: 20191115
  Transmission Date: 20200122
  Serious: Yes (Hospitalization)
  Sender: FDA-Public Use
  Company Number: None

PATIENT
  Sex: Female

DRUGS (4)
  1. CHOLESTYRAM [Concomitant]
     Active Substance: CHOLESTYRAMINE
  2. PROMACTA [Suspect]
     Active Substance: ELTROMBOPAG OLAMINE
     Indication: THROMBOCYTOPENIA
     Route: 048
     Dates: start: 20190517
  3. DORZOL/TIMOL [Concomitant]
  4. LANTANOPROST [Concomitant]
     Active Substance: LATANOPROST

REACTIONS (2)
  - Surgery [None]
  - Therapy cessation [None]
